FAERS Safety Report 4274093-9 (Version None)
Quarter: 2004Q1

REPORT INFORMATION
  Report Type: 
  Country: None (occurrence: None)
  Receive Date: 20040120
  Receipt Date: 20040119
  Transmission Date: 20041129
  Serious: Yes (Other)
  Sender: FDA-Public Use
  Company Number: US-GLAXOSMITHKLINE-A0493979A

PATIENT
  Sex: Female

DRUGS (5)
  1. LOTRONEX [Suspect]
     Indication: IRRITABLE BOWEL SYNDROME
     Dosage: 1MG PER DAY
     Route: 048
     Dates: start: 20030301, end: 20031201
  2. LOMOTIL [Concomitant]
  3. NORVASC [Concomitant]
  4. VASOTEC [Concomitant]
  5. SINGULAIR [Concomitant]

REACTIONS (2)
  - INTESTINAL HAEMORRHAGE [None]
  - INTESTINAL ISCHAEMIA [None]
